FAERS Safety Report 9637103 (Version 3)
Quarter: 2019Q1

REPORT INFORMATION
  Report Type: Spontaneous
  Country: US (occurrence: US)
  Receive Date: 20131022
  Receipt Date: 20190129
  Transmission Date: 20190418
  Serious: Yes (Other)
  Sender: FDA-Public Use
  Company Number: US-SA-2013SA104114

PATIENT
  Age: 87 Year
  Sex: Female
  Weight: 68.49 kg

DRUGS (3)
  1. LANTUS SOLOSTAR [Suspect]
     Active Substance: INSULIN GLARGINE
     Dosage: 68 DF,QD
     Route: 058
  2. LANTUS SOLOSTAR [Suspect]
     Active Substance: INSULIN GLARGINE
     Dosage: 26 U, QD
     Route: 065
  3. LANTUS SOLOSTAR [Suspect]
     Active Substance: INSULIN GLARGINE
     Indication: TYPE 2 DIABETES MELLITUS
     Dosage: 68 DF,QD
     Route: 058

REACTIONS (5)
  - Gait disturbance [Unknown]
  - Rheumatoid arthritis [Unknown]
  - Parkinson^s disease [Unknown]
  - Arrhythmia [Unknown]
  - Hypertension [Unknown]
